FAERS Safety Report 10678393 (Version 3)
Quarter: 2015Q1

REPORT INFORMATION
  Report Type: Spontaneous
  Country: US (occurrence: US)
  Receive Date: 20141229
  Receipt Date: 20150213
  Transmission Date: 20150720
  Serious: Yes (Hospitalization, Other)
  Sender: FDA-Public Use
  Company Number: US-JNJFOC-20141217006

PATIENT
  Age: 73 Year
  Sex: Male

DRUGS (6)
  1. IMBRUVICA [Suspect]
     Active Substance: IBRUTINIB
     Indication: CHRONIC LYMPHOCYTIC LEUKAEMIA
     Route: 048
     Dates: start: 20140221, end: 201412
  2. ALLOPURINOL. [Concomitant]
     Active Substance: ALLOPURINOL
  3. VALTREX [Concomitant]
     Active Substance: VALACYCLOVIR HYDROCHLORIDE
  4. IMBRUVICA [Suspect]
     Active Substance: IBRUTINIB
     Indication: CHRONIC LYMPHOCYTIC LEUKAEMIA
     Route: 048
     Dates: start: 20150112
  5. NORVASC [Concomitant]
     Active Substance: AMLODIPINE BESYLATE
     Indication: HYPERTENSION
  6. BENICAR [Concomitant]
     Active Substance: OLMESARTAN MEDOXOMIL
     Indication: HYPERTENSION

REACTIONS (11)
  - Pleural effusion [Recovering/Resolving]
  - Atrial fibrillation [Recovered/Resolved]
  - Fluid overload [Recovering/Resolving]
  - Lymphadenopathy [Unknown]
  - Pericardial haemorrhage [Recovered/Resolved]
  - Generalised oedema [Recovering/Resolving]
  - Cardiac tamponade [Recovered/Resolved]
  - Leukocytosis [Recovered/Resolved]
  - Pneumonia [Recovering/Resolving]
  - Acute kidney injury [Recovered/Resolved]
  - Malaise [Unknown]

NARRATIVE: CASE EVENT DATE: 201412
